FAERS Safety Report 15730959 (Version 18)
Quarter: 2020Q3

REPORT INFORMATION
  Report Type: Spontaneous
  Country: US (occurrence: US)
  Receive Date: 20181217
  Receipt Date: 20200708
  Transmission Date: 20201102
  Serious: Yes (Life-Threatening, Hospitalization, Other)
  Sender: FDA-Public Use
  Company Number: US-ACTELION-A-US2018-183839

PATIENT
  Age: 44 Year
  Sex: Female
  Weight: 85.71 kg

DRUGS (24)
  1. VELETRI [Suspect]
     Active Substance: EPOPROSTENOL
     Dosage: 18.8 NG/KG, PER MIN
     Route: 042
  2. BUSPAR [Concomitant]
     Active Substance: BUSPIRONE HYDROCHLORIDE
     Dosage: 5 MG, BID
  3. VITAMIN B12 [Concomitant]
     Active Substance: CYANOCOBALAMIN
     Dosage: 2500 MCG, Q1WEEK
     Route: 058
  4. VELETRI [Suspect]
     Active Substance: EPOPROSTENOL
     Dosage: 46.5 NG/KG, PER MIN
     Route: 042
  5. VELETRI [Suspect]
     Active Substance: EPOPROSTENOL
     Dosage: 8 NG/KG, PER MIN
     Route: 042
  6. VELETRI [Suspect]
     Active Substance: EPOPROSTENOL
     Dosage: 29 NG/KG, PER MIN
     Route: 042
  7. WARFARIN [Concomitant]
     Active Substance: WARFARIN
  8. VELETRI [Suspect]
     Active Substance: EPOPROSTENOL
     Dosage: 13.3 NG/KG, PER MIN
     Route: 042
  9. ELIQUIS [Concomitant]
     Active Substance: APIXABAN
  10. FUROSEMIDE. [Concomitant]
     Active Substance: FUROSEMIDE
  11. DIGOXIN. [Concomitant]
     Active Substance: DIGOXIN
     Dosage: 125 MG, QD
  12. DRISDOL [Concomitant]
     Active Substance: ERGOCALCIFEROL
     Dosage: UNK, QD
  13. SYNTHROID [Concomitant]
     Active Substance: LEVOTHYROXINE SODIUM
     Dosage: 50 MG, QD
  14. RENVELA [Concomitant]
     Active Substance: SEVELAMER CARBONATE
     Dosage: 800 MG, TID
  15. VELETRI [Suspect]
     Active Substance: EPOPROSTENOL
     Indication: PULMONARY ARTERIAL HYPERTENSION
     Dosage: 40 NG/KG, PER MIN
     Route: 042
     Dates: start: 20200314
  16. VELETRI [Suspect]
     Active Substance: EPOPROSTENOL
     Dosage: 22.5 NG/KG, PER MIN
     Route: 042
  17. SILDENAFIL. [Concomitant]
     Active Substance: SILDENAFIL
  18. PEPCID [Concomitant]
     Active Substance: FAMOTIDINE
     Dosage: 40 MG, QPM
  19. NEPHRO VITE RX [Concomitant]
     Active Substance: ASCORBIC ACID\BIOTIN\CALCIUM PANTOTHENATE\CYANOCOBALAMIN\FOLIC ACID\NIACINAMIDE\PYRIDOXINE HYDROCHLORIDE\RIBOFLAVIN\THIAMINE MONONITRATE
     Dosage: 0.8 MG, QD
  20. VELETRI [Suspect]
     Active Substance: EPOPROSTENOL
     Dosage: 11.4 NG/KG, PER MIN
     Route: 042
  21. FERROUS SULFATE. [Concomitant]
     Active Substance: FERROUS SULFATE
  22. OPSUMIT [Suspect]
     Active Substance: MACITENTAN
     Indication: PULMONARY ARTERIAL HYPERTENSION
     Dosage: 10 MG, QD
     Route: 048
     Dates: start: 20180726
  23. METOPROLOL. [Concomitant]
     Active Substance: METOPROLOL
     Dosage: 12.5 MG, BID
  24. ZYLOPRIM [Concomitant]
     Active Substance: ALLOPURINOL
     Dosage: 100 MG, QD

REACTIONS (67)
  - Cholangitis [Unknown]
  - Chest pain [Unknown]
  - Gait disturbance [Unknown]
  - White blood cell count abnormal [Unknown]
  - Dizziness [Unknown]
  - Respiratory failure [Recovered/Resolved with Sequelae]
  - Swelling [Unknown]
  - Lethargy [Unknown]
  - Nausea [Unknown]
  - Myalgia [Unknown]
  - Dyspnoea exertional [Unknown]
  - Dehydration [Unknown]
  - Blood urea abnormal [Unknown]
  - Blood creatinine abnormal [Unknown]
  - Alanine aminotransferase abnormal [Unknown]
  - Diplopia [Unknown]
  - Cholecystectomy [Unknown]
  - Fistula repair [Unknown]
  - Pulmonary hypertension [Unknown]
  - Peripheral swelling [Recovering/Resolving]
  - Hypotension [Unknown]
  - Device malfunction [Unknown]
  - Abdominal pain [Recovered/Resolved with Sequelae]
  - Catheter site infection [Unknown]
  - Decreased appetite [Unknown]
  - Catheter site erythema [Unknown]
  - Blood bilirubin abnormal [Unknown]
  - Blood alkaline phosphatase increased [Unknown]
  - Hospitalisation [Unknown]
  - Urine output decreased [Unknown]
  - Catheter site pruritus [Unknown]
  - Miliaria [Unknown]
  - Fatigue [Unknown]
  - Dilatation ventricular [Unknown]
  - Platelet disorder [Unknown]
  - Haematocrit abnormal [Unknown]
  - Pancreatitis [Unknown]
  - Renal failure [Unknown]
  - Therapy change [Not Recovered/Not Resolved]
  - Blindness [Unknown]
  - Diarrhoea [Unknown]
  - Flushing [Unknown]
  - Skin discomfort [Not Recovered/Not Resolved]
  - Blood potassium decreased [Unknown]
  - Weight decreased [Unknown]
  - Rash [Unknown]
  - Dry eye [Unknown]
  - Dyspnoea [Recovering/Resolving]
  - Cholecystitis [Recovered/Resolved with Sequelae]
  - Mitral valve incompetence [Unknown]
  - Haemoglobin abnormal [Unknown]
  - Blood albumin abnormal [Unknown]
  - Cholecystitis infective [Unknown]
  - Pain in jaw [Unknown]
  - Skin lesion [Unknown]
  - Fluid overload [Unknown]
  - Dialysis [Unknown]
  - Fluid retention [Unknown]
  - Cellulitis [Recovered/Resolved]
  - Bile duct stone [Recovered/Resolved with Sequelae]
  - Headache [Unknown]
  - Vomiting [Unknown]
  - Incorrect dose administered [Not Recovered/Not Resolved]
  - Oedema peripheral [Recovering/Resolving]
  - Somnolence [Unknown]
  - Aspartate aminotransferase abnormal [Unknown]
  - Ulcer [Unknown]

NARRATIVE: CASE EVENT DATE: 201808
